FAERS Safety Report 17464253 (Version 1)
Quarter: 2020Q1

REPORT INFORMATION
  Report Type: Report from Study
  Country: US (occurrence: US)
  Receive Date: 20200226
  Receipt Date: 20200226
  Transmission Date: 20200409
  Serious: Yes (Other)
  Sender: FDA-Public Use
  Company Number: US-ACTELION-A-NJ2016-147674

PATIENT
  Age: 44 Year
  Sex: Female
  Weight: 113.38 kg

DRUGS (7)
  1. VELETRI [Suspect]
     Active Substance: EPOPROSTENOL
     Dosage: 32 NG/KG, PER MIN
     Route: 042
  2. VELETRI [Suspect]
     Active Substance: EPOPROSTENOL
     Indication: PULMONARY ARTERIAL HYPERTENSION
     Dosage: 32 NG/KG, PER MIN
     Route: 042
  3. SILDENAFIL. [Concomitant]
     Active Substance: SILDENAFIL
  4. VELETRI [Suspect]
     Active Substance: EPOPROSTENOL
     Dosage: 30 NG/KG, PER MIN
     Route: 042
     Dates: start: 20140724
  5. VELETRI [Suspect]
     Active Substance: EPOPROSTENOL
     Dosage: 40 NG/KG, PER MIN
     Route: 042
  6. OPSUMIT [Concomitant]
     Active Substance: MACITENTAN
     Indication: PULMONARY ARTERIAL HYPERTENSION
  7. WARFARIN [Concomitant]
     Active Substance: WARFARIN

REACTIONS (29)
  - Pancreatitis acute [Unknown]
  - Weight decreased [Unknown]
  - Influenza B virus test positive [Not Recovered/Not Resolved]
  - Fatigue [Not Recovered/Not Resolved]
  - Pain in extremity [Not Recovered/Not Resolved]
  - Malaise [Unknown]
  - Oedema peripheral [Unknown]
  - Cystitis [Unknown]
  - Vomiting [Unknown]
  - Migraine [Unknown]
  - Blood potassium decreased [Unknown]
  - Nasopharyngitis [Unknown]
  - Weight increased [Unknown]
  - Colitis [Unknown]
  - White blood cell count increased [Unknown]
  - Loss of consciousness [Unknown]
  - Cardiac flutter [Unknown]
  - Pain in jaw [Unknown]
  - Diarrhoea [Unknown]
  - Pain [Unknown]
  - Urinary tract infection [Unknown]
  - Pyrexia [Unknown]
  - Palpitations [Unknown]
  - Asthenia [Not Recovered/Not Resolved]
  - Rash [Not Recovered/Not Resolved]
  - Insomnia [Not Recovered/Not Resolved]
  - Dyspnoea exertional [Not Recovered/Not Resolved]
  - Influenza [Unknown]
  - Lipase increased [Unknown]

NARRATIVE: CASE EVENT DATE: 201706
